FAERS Safety Report 25237831 (Version 1)
Quarter: 2025Q2

REPORT INFORMATION
  Report Type: Spontaneous
  Country: US (occurrence: US)
  Receive Date: 20250425
  Receipt Date: 20250425
  Transmission Date: 20250716
  Serious: No
  Sender: AMGEN
  Company Number: US-AMGEN-USASP2025080692

PATIENT

DRUGS (2)
  1. OTEZLA [Suspect]
     Active Substance: APREMILAST
     Indication: Off label use
     Route: 065
  2. OTEZLA [Suspect]
     Active Substance: APREMILAST
     Indication: Inflammation

REACTIONS (2)
  - Off label use [Unknown]
  - Pain [Unknown]
